FAERS Safety Report 18942464 (Version 2)
Quarter: 2022Q4

REPORT INFORMATION
  Report Type: Spontaneous
  Country: US (occurrence: US)
  Receive Date: 20210225
  Receipt Date: 20221219
  Transmission Date: 20230113
  Serious: Yes (Life-Threatening, Hospitalization, Other)
  Sender: FDA-Public Use
  Company Number: US-MLMSERVICE-20210212-2716003-1

PATIENT
  Age: 57 Year
  Sex: Female

DRUGS (2)
  1. METRONIDAZOLE [Suspect]
     Active Substance: METRONIDAZOLE
     Indication: Helicobacter infection
     Dosage: UNK
  2. LACTULOSE [Concomitant]
     Active Substance: LACTULOSE
     Dosage: UNK

REACTIONS (8)
  - Aphasia [Recovered/Resolved]
  - Demyelination [Recovered/Resolved]
  - Toxicity to various agents [Recovered/Resolved]
  - Neurotoxicity [Recovered/Resolved]
  - Confusional state [Recovered/Resolved]
  - Ataxia [Recovered/Resolved]
  - Speech disorder [Recovered/Resolved]
  - Dysarthria [Recovered/Resolved]
